FAERS Safety Report 8999980 (Version 1)
Quarter: 2013Q1

REPORT INFORMATION
  Report Type: Spontaneous
  Country: US (occurrence: US)
  Receive Date: 20130102
  Receipt Date: 20130102
  Transmission Date: 20140127
  Serious: Yes (Hospitalization)
  Sender: FDA-Public Use
  Company Number: US-JNJFOC-20121211727

PATIENT
  Age: 5 Year
  Sex: Female

DRUGS (4)
  1. CHILDREN^S BENADRYL [Suspect]
     Indication: MULTIPLE ALLERGIES
     Route: 065
  2. CHILDREN^S BENADRYL [Suspect]
     Indication: SLEEP DISORDER THERAPY
     Route: 065
  3. PAXIL [Concomitant]
     Indication: ANTIDEPRESSANT THERAPY
     Route: 065
  4. PROZAC [Concomitant]
     Indication: ANTIDEPRESSANT THERAPY
     Route: 065

REACTIONS (5)
  - Anxiety [Not Recovered/Not Resolved]
  - Restlessness [Not Recovered/Not Resolved]
  - Nervousness [Not Recovered/Not Resolved]
  - Off label use [Unknown]
  - Drug administered to patient of inappropriate age [Unknown]
